FAERS Safety Report 16261715 (Version 3)
Quarter: 2019Q4

REPORT INFORMATION
  Report Type: Spontaneous
  Country: US (occurrence: US)
  Receive Date: 20190501
  Receipt Date: 20191009
  Transmission Date: 20200122
  Serious: Yes (Other)
  Sender: FDA-Public Use
  Company Number: US-ASTRAZENECA-2018SF65578

PATIENT
  Age: 17431 Day
  Sex: Female

DRUGS (31)
  1. BENZONATATE. [Concomitant]
     Active Substance: BENZONATATE
  2. ALPRAZOLAM. [Concomitant]
     Active Substance: ALPRAZOLAM
  3. EPIPEN [Concomitant]
     Active Substance: EPINEPHRINE
  4. ZONISAMIDE. [Concomitant]
     Active Substance: ZONISAMIDE
  5. SUMATRIPTAN. [Concomitant]
     Active Substance: SUMATRIPTAN
  6. ONDANSETRON [Concomitant]
     Active Substance: ONDANSETRON
  7. TRAZODONE [Concomitant]
     Active Substance: TRAZODONE HYDROCHLORIDE
  8. BACLOFEN. [Concomitant]
     Active Substance: BACLOFEN
  9. NITROGLYCERIN. [Concomitant]
     Active Substance: NITROGLYCERIN
  10. NYSTATIN. [Concomitant]
     Active Substance: NYSTATIN
  11. AZELASTINE. [Concomitant]
     Active Substance: AZELASTINE HYDROCHLORIDE
  12. PROMETHAZINE [Concomitant]
     Active Substance: PROMETHAZINE HYDROCHLORIDE
  13. CLONIDINE. [Concomitant]
     Active Substance: CLONIDINE
  14. PROPRANOLOL [Concomitant]
     Active Substance: PROPRANOLOL HYDROCHLORIDE
  15. MELOXICAM. [Concomitant]
     Active Substance: MELOXICAM
  16. NEXIUM [Suspect]
     Active Substance: ESOMEPRAZOLE MAGNESIUM
     Route: 048
  17. NEXIUM [Suspect]
     Active Substance: ESOMEPRAZOLE MAGNESIUM
     Route: 048
     Dates: start: 20070924
  18. LEXAPRO [Concomitant]
     Active Substance: ESCITALOPRAM OXALATE
  19. DEXAMETHASONE. [Concomitant]
     Active Substance: DEXAMETHASONE
  20. ROZEREM [Concomitant]
     Active Substance: RAMELTEON
  21. TIZANIDINE. [Concomitant]
     Active Substance: TIZANIDINE
  22. ATORVASTATIN [Concomitant]
     Active Substance: ATORVASTATIN
  23. DULOXETINE. [Concomitant]
     Active Substance: DULOXETINE
  24. OXYBUTYNIN. [Concomitant]
     Active Substance: OXYBUTYNIN CHLORIDE
  25. PREMARIN [Concomitant]
     Active Substance: ESTROGENS, CONJUGATED
  26. VENLAFAXINE [Concomitant]
     Active Substance: VENLAFAXINE HYDROCHLORIDE
  27. METFORMIN [Concomitant]
     Active Substance: METFORMIN HYDROCHLORIDE
  28. GABAPENTIN. [Concomitant]
     Active Substance: GABAPENTIN
  29. FENOFIBRATE. [Concomitant]
     Active Substance: FENOFIBRATE
  30. CARVEDILOL. [Concomitant]
     Active Substance: CARVEDILOL
  31. OMEPRAZOLE. [Concomitant]
     Active Substance: OMEPRAZOLE

REACTIONS (5)
  - Renal failure [Unknown]
  - Rebound acid hypersecretion [Unknown]
  - Renal injury [Unknown]
  - Acute kidney injury [Unknown]
  - Chronic kidney disease [Unknown]

NARRATIVE: CASE EVENT DATE: 20160909
